FAERS Safety Report 9753587 (Version 2)
Quarter: 2013Q4

REPORT INFORMATION
  Report Type: Spontaneous
  Country: BR (occurrence: BR)
  Receive Date: 20131213
  Receipt Date: 20131231
  Transmission Date: 20140711
  Serious: Yes (Hospitalization, Other)
  Sender: FDA-Public Use
  Company Number: BR-PFIZER INC-2013355157

PATIENT
  Age: 70 Year
  Sex: Male

DRUGS (7)
  1. ATENOLOL [Suspect]
     Indication: HYPERTENSION
     Dosage: 25 MG, DAILY
     Route: 048
     Dates: start: 2010
  2. BRILINTA [Suspect]
     Indication: CORONARY ARTERY OCCLUSION
     Dosage: 90 MG, 2X/DAY
     Route: 048
     Dates: start: 20131029
  3. METFORMIN [Concomitant]
     Indication: DIABETES MELLITUS
     Dosage: 850 MG, 3X/DAY
     Route: 048
     Dates: end: 20131027
  4. DIAMICRON [Concomitant]
     Indication: DIABETES MELLITUS
     Dosage: UNK, DAILY
     Route: 048
     Dates: end: 20131027
  5. ENALAPRIL [Concomitant]
     Indication: HYPERTENSION
     Dosage: UNK, DAILY
     Route: 048
  6. SIMVASTATIN [Concomitant]
     Indication: BLOOD CHOLESTEROL INCREASED
     Dosage: UNK, DAILY
     Route: 048
  7. ASPIRINA [Concomitant]
     Indication: ANGIOPLASTY
     Dosage: UNK, DAILY
     Route: 048
     Dates: start: 2010

REACTIONS (4)
  - Coronary artery occlusion [Recovered/Resolved]
  - Hyperglycaemia [Recovered/Resolved]
  - Diarrhoea [Not Recovered/Not Resolved]
  - Dyspnoea [Not Recovered/Not Resolved]
